FAERS Safety Report 5047422-6 (Version None)
Quarter: 2006Q2

REPORT INFORMATION
  Report Type: 
  Country: None (occurrence: None)
  Receive Date: 20060601
  Receipt Date: 20060325
  Transmission Date: 20061013
  Serious: No
  Sender: FDA-Public Use
  Company Number: 2006PV010913

PATIENT
  Age: 49 Year
  Sex: Female
  Weight: 90.7194 kg

DRUGS (11)
  1. BYETTA [Suspect]
     Indication: DIABETES MELLITUS NON-INSULIN-DEPENDENT
     Dosage: 5 MCG;BID;SC
     Route: 058
     Dates: start: 20060324
  2. GLUCOPHAGE [Concomitant]
  3. LANTUS [Concomitant]
  4. HYDROCHLOROTHIAZIDE [Concomitant]
  5. ATENOLOL [Concomitant]
  6. CHLORAZEPAM [Concomitant]
  7. POTASSIUM [Concomitant]
  8. NIACIN [Concomitant]
  9. CALCIUM MAGNESIUM ZINC [Concomitant]
  10. MULTIVITAMIN [Concomitant]
  11. FLAXSEED OIL [Concomitant]

REACTIONS (12)
  - ANXIETY [None]
  - BLOOD GLUCOSE DECREASED [None]
  - CHEST DISCOMFORT [None]
  - DYSGEUSIA [None]
  - FLATULENCE [None]
  - FLUSHING [None]
  - HEADACHE [None]
  - HYPERSENSITIVITY [None]
  - PAIN IN EXTREMITY [None]
  - PARAESTHESIA [None]
  - PARAESTHESIA ORAL [None]
  - PAROSMIA [None]
